FAERS Safety Report 9995095 (Version 1)
Quarter: 2014Q1

REPORT INFORMATION
  Report Type: Spontaneous
  Country: FR (occurrence: FR)
  Receive Date: 20140311
  Receipt Date: 20140311
  Transmission Date: 20141002
  Serious: Yes (Hospitalization)
  Sender: FDA-Public Use
  Company Number: FR-ELI_LILLY_AND_COMPANY-FR201403000185

PATIENT
  Age: 76 Year
  Sex: Female

DRUGS (7)
  1. CYMBALTA [Suspect]
     Indication: DEPRESSION
     Dosage: 60 MG, QD
     Route: 065
     Dates: start: 20131217, end: 20131221
  2. LYRICA [Concomitant]
     Dosage: 150 MG, QD
  3. RIVOTRIL [Concomitant]
     Dosage: 0.35 ML (7 DROPS), QD
  4. LIPANTHYL [Concomitant]
     Dosage: 160 MG, QD
  5. AMLOR [Concomitant]
     Dosage: 5 MG, QD
  6. DEBRIDAT                           /00465201/ [Concomitant]
     Dosage: UNK
  7. DOLIPRANE [Concomitant]
     Dosage: UNK

REACTIONS (2)
  - General physical health deterioration [Unknown]
  - Hyponatraemia [Recovered/Resolved]
